FAERS Safety Report 10589557 (Version 3)
Quarter: 2015Q1

REPORT INFORMATION
  Report Type: Spontaneous
  Country: US (occurrence: None)
  Receive Date: 20141114
  Receipt Date: 20150120
  Transmission Date: 20150720
  Serious: Yes (Other)
  Sender: FDA-Public Use
  Company Number: 2014-US-014520

PATIENT
  Age: 23 Year
  Sex: Male
  Weight: 112.1 kg

DRUGS (12)
  1. CALTRATE 600 + D (CALCIUM CARBONATE, COLECALCIFEROL) [Concomitant]
  2. PROVIGIL [Suspect]
     Active Substance: MODAFINIL
     Indication: PRODUCT USED FOR UNKNOWN INDICATION
     Route: 048
  3. XYREM [Suspect]
     Active Substance: SODIUM OXYBATE
     Indication: SOMNOLENCE
     Route: 048
     Dates: start: 201012
  4. DIVALPROEX SODIUM (VALPROATE SEMISODIUM) [Concomitant]
  5. VITAMIN D2 (ERGOCALCIFEROL) [Concomitant]
  6. FLUTICASONE [Concomitant]
     Active Substance: FLUTICASONE\FLUTICASONE PROPIONATE
  7. OMEPRAZOLE MAGNESIUM (OMEPRAZOLE) [Concomitant]
  8. XYREM [Suspect]
     Active Substance: SODIUM OXYBATE
     Indication: NARCOLEPSY
     Route: 048
     Dates: start: 201012
  9. AMITRIPTYLINE HCL (AMITRIPTYLINE HYDROCHLORIDE) [Concomitant]
  10. NUVIGIL [Concomitant]
     Active Substance: ARMODAFINIL
  11. QUETIAPINE (QUETIAPINE) [Suspect]
     Active Substance: QUETIAPINE
  12. SERTRALINE (SERTRALINE) TABLET [Suspect]
     Active Substance: SERTRALINE HYDROCHLORIDE
     Indication: DEPRESSION
     Route: 048
     Dates: start: 2011

REACTIONS (13)
  - Leukocytosis [None]
  - Pharyngeal erythema [None]
  - Increased appetite [None]
  - Nightmare [None]
  - Asthenia [None]
  - Nasal congestion [None]
  - Diarrhoea [None]
  - Fatigue [None]
  - Sleep apnoea syndrome [None]
  - Weight decreased [None]
  - Weight increased [None]
  - Apathy [None]
  - Affective disorder [None]

NARRATIVE: CASE EVENT DATE: 201105
